FAERS Safety Report 5054506-5 (Version None)
Quarter: 2006Q3

REPORT INFORMATION
  Report Type: 
  Country: None (occurrence: None)
  Receive Date: 20060714
  Receipt Date: 20060705
  Transmission Date: 20061208
  Serious: Yes (Hospitalization)
  Sender: FDA-Public Use
  Company Number: ST-2006-009119

PATIENT
  Age: 75 Year
  Sex: Male

DRUGS (4)
  1. OLMETEC [Suspect]
     Indication: HYPERTENSION
     Dosage: 20 MG QD PO
     Route: 048
     Dates: start: 20060528, end: 20060529
  2. HERBESSER ^TANABE^ [Concomitant]
  3. ROCORNAL [Concomitant]
  4. BEZATOL - SLOW RELEASE [Concomitant]

REACTIONS (2)
  - BLOOD PRESSURE DECREASED [None]
  - DIZZINESS [None]
